FAERS Safety Report 17130718 (Version 1)
Quarter: 2019Q4

REPORT INFORMATION
  Report Type: Report from Study
  Country: US (occurrence: US)
  Receive Date: 20191209
  Receipt Date: 20191209
  Transmission Date: 20200122
  Serious: Yes (Other)
  Sender: FDA-Public Use
  Company Number: US-BAYER-2019-169035

PATIENT
  Age: 15 Year
  Sex: Male
  Weight: 116 kg

DRUGS (6)
  1. STIVARGA [Suspect]
     Active Substance: REGORAFENIB
     Indication: COLORECTAL CANCER
     Dosage: 120 MG DAILY X 21 DAYS
     Route: 048
     Dates: start: 20190820, end: 20190910
  2. STIVARGA [Suspect]
     Active Substance: REGORAFENIB
     Indication: BONE CANCER
     Dosage: 160 MG, QD
     Route: 048
     Dates: start: 2019, end: 20190621
  3. STIVARGA [Suspect]
     Active Substance: REGORAFENIB
     Indication: COLORECTAL CANCER
     Dosage: 40 MG
     Route: 048
     Dates: start: 20190531
  4. STIVARGA [Suspect]
     Active Substance: REGORAFENIB
     Indication: MALIGNANT JOINT NEOPLASM
     Dosage: 120 MG DAILY X 21 DAYS
     Route: 048
     Dates: start: 20190723, end: 20190813
  5. STIVARGA [Suspect]
     Active Substance: REGORAFENIB
     Indication: COLORECTAL CANCER
     Dosage: 120 MG, QD X 21 DAYS
     Route: 048
     Dates: start: 20191015, end: 20191105
  6. STIVARGA [Suspect]
     Active Substance: REGORAFENIB
     Indication: COLORECTAL CANCER
     Dosage: 120 MG, QD X 21 DAYS
     Route: 048
     Dates: start: 20190917, end: 20191008

REACTIONS (9)
  - Abdominal pain [Recovered/Resolved]
  - Product administered to patient of inappropriate age [None]
  - Nausea [None]
  - Pain in extremity [Recovered/Resolved]
  - Palmar-plantar erythrodysaesthesia syndrome [Recovering/Resolving]
  - Rash maculo-papular [Recovered/Resolved]
  - Abdominal pain [Recovering/Resolving]
  - Metastases to lung [None]
  - Off label use [None]

NARRATIVE: CASE EVENT DATE: 20190531
